FAERS Safety Report 8103867-9 (Version None)
Quarter: 2012Q1

REPORT INFORMATION
  Report Type: 
  Country: None (occurrence: None)
  Receive Date: 20120201
  Receipt Date: 20120123
  Transmission Date: 20120608
  Serious: Yes (Hospitalization)
  Sender: FDA-Public Use
  Company Number: US-JNJFOC-20120111299

PATIENT
  Age: 87 Year
  Sex: Female

DRUGS (3)
  1. STEROIDS NOS [Concomitant]
     Indication: PRODUCT USED FOR UNKNOWN INDICATION
     Route: 065
  2. EXTRA STRENGTH TYLENOL [Suspect]
     Indication: PRODUCT USED FOR UNKNOWN INDICATION
     Route: 048
  3. EXTRA STRENGTH TYLENOL [Suspect]
     Route: 048

REACTIONS (4)
  - PRODUCT COLOUR ISSUE [None]
  - FALL [None]
  - BRAIN OEDEMA [None]
  - DIZZINESS [None]
